FAERS Safety Report 6771628-9 (Version None)
Quarter: 2010Q2

REPORT INFORMATION
  Report Type: 
  Country: None (occurrence: None)
  Receive Date: 20100616
  Receipt Date: 20100607
  Transmission Date: 20101027
  Serious: Yes (Other)
  Sender: FDA-Public Use
  Company Number: PHHY2010US25810

PATIENT
  Sex: Female
  Weight: 53.061 kg

DRUGS (9)
  1. RECLAST [Suspect]
     Indication: OSTEOPOROSIS
     Dosage: 5 MG
     Route: 042
     Dates: start: 20100323
  2. VICODIN [Concomitant]
     Dosage: UNK
  3. LIDODERM [Concomitant]
     Dosage: UNK
  4. ELAVIL [Concomitant]
     Indication: FIBROMYALGIA
     Dosage: 75 MG, DAILY
  5. NEXIUM [Concomitant]
     Indication: GASTROOESOPHAGEAL REFLUX DISEASE
     Dosage: 40 MG, DAILY
  6. KLONOPIN [Concomitant]
     Dosage: UNK
  7. ZOLOFT [Concomitant]
     Dosage: 50 MG, DAILY
  8. CELEBREX [Concomitant]
     Indication: OSTEOARTHRITIS
     Dosage: 200 MG, DAILY
  9. ZETIA [Concomitant]
     Indication: BLOOD CHOLESTEROL INCREASED
     Dosage: UNK

REACTIONS (1)
  - ALOPECIA [None]
